FAERS Safety Report 15465239 (Version 1)
Quarter: 2018Q4

REPORT INFORMATION
  Report Type: Other
  Country: KR (occurrence: KR)
  Receive Date: 20181004
  Receipt Date: 20181004
  Transmission Date: 20190204
  Serious: Yes (Hospitalization)
  Sender: FDA-Public Use
  Company Number: KR-B. BRAUN MEDICAL INC.-2055690

PATIENT
  Age: 61 Year
  Sex: Female

DRUGS (1)
  1. DEXTROSE INJECTIONS USP 0264-7510-00 0264-7510-20 [Suspect]
     Active Substance: DEXTROSE

REACTIONS (4)
  - Depressed level of consciousness [None]
  - Electrocardiogram QT prolonged [None]
  - Hyperglycaemia [None]
  - Pleural effusion [None]
